FAERS Safety Report 8445967-X (Version None)
Quarter: 2012Q2

REPORT INFORMATION
  Report Type: 
  Country: None (occurrence: None)
  Receive Date: 20120618
  Receipt Date: 20120608
  Transmission Date: 20120825
  Serious: No
  Sender: FDA-Public Use
  Company Number: US-PFIZER INC-2006113904

PATIENT
  Age: 71 Year
  Sex: Female

DRUGS (2)
  1. PRILOSEC [Concomitant]
     Indication: OESOPHAGITIS
     Dosage: UNK
  2. LIPITOR [Suspect]
     Dosage: UNK

REACTIONS (2)
  - BLOOD CREATINE PHOSPHOKINASE ABNORMAL [None]
  - ASTHENIA [None]
